FAERS Safety Report 15750779 (Version 1)
Quarter: 2018Q4

REPORT INFORMATION
  Report Type: Spontaneous
  Country: US (occurrence: US)
  Receive Date: 20181208
  Receipt Date: 20181208
  Transmission Date: 20190205
  Serious: Yes (Life-Threatening, Hospitalization, Disabling)
  Sender: FDA-Public Use
  Company Number: None

PATIENT
  Age: 24 Year
  Sex: Female

DRUGS (1)
  1. PARAGARD T 380A [Suspect]
     Active Substance: COPPER

REACTIONS (6)
  - Ectopic pregnancy with contraceptive device [None]
  - Vaginal haemorrhage [None]
  - Urethritis noninfective [None]
  - Pregnancy with contraceptive device [None]
  - Ruptured ectopic pregnancy [None]
  - Vulvovaginal pain [None]

NARRATIVE: CASE EVENT DATE: 20170220
